FAERS Safety Report 20996863 (Version 1)
Quarter: 2022Q2

REPORT INFORMATION
  Report Type: Report from Study
  Country: US (occurrence: US)
  Receive Date: 20220623
  Receipt Date: 20220623
  Transmission Date: 20220721
  Serious: Yes (Hospitalization)
  Sender: FDA-Public Use
  Company Number: US-ABBVIE-22K-163-4432599-00

PATIENT
  Sex: Female
  Weight: 63.560 kg

DRUGS (6)
  1. DUOPA [Suspect]
     Active Substance: CARBIDOPA\LEVODOPA
     Indication: Parkinson^s disease
     Dosage: 1 CASSETTE, MD: 9ML (RANGE 6-12ML), CD: 2ML/HOUR (RANGE 1.8-2.6ML), ED: 1ML(RANGE 1-1.5ML)
     Route: 050
     Dates: start: 20220518
  2. DUOPA [Suspect]
     Active Substance: CARBIDOPA\LEVODOPA
  3. SINEMET [Concomitant]
     Active Substance: CARBIDOPA\LEVODOPA
     Indication: Parkinson^s disease
  4. MODERNA COVID-19 VACCINE [Concomitant]
     Active Substance: ELASOMERAN
     Indication: COVID-19 immunisation
     Dosage: FIRST DOSE
     Route: 030
     Dates: start: 20210519, end: 20210519
  5. MODERNA COVID-19 VACCINE [Concomitant]
     Active Substance: ELASOMERAN
     Dosage: SECOND DOSE
     Route: 030
     Dates: start: 20210626, end: 20210626
  6. MODERNA COVID-19 VACCINE [Concomitant]
     Active Substance: ELASOMERAN
     Dosage: THIRD DOSE
     Route: 030
     Dates: start: 20220122, end: 20220122

REACTIONS (9)
  - Spinal fracture [Unknown]
  - Gastrointestinal infection [Recovered/Resolved]
  - Flatulence [Recovering/Resolving]
  - Fracture [Unknown]
  - COVID-19 [Unknown]
  - Rib fracture [Unknown]
  - Fall [Recovering/Resolving]
  - Pain [Recovering/Resolving]
  - Back pain [Unknown]

NARRATIVE: CASE EVENT DATE: 20220101
